FAERS Safety Report 10254940 (Version 1)
Quarter: 2014Q2

REPORT INFORMATION
  Report Type: Spontaneous
  Country: AU (occurrence: AU)
  Receive Date: 20140624
  Receipt Date: 20140624
  Transmission Date: 20141212
  Serious: Yes (Hospitalization, Other)
  Sender: FDA-Public Use
  Company Number: AU-MYLANLABS-2014S1014337

PATIENT
  Age: 68 Year
  Sex: Female

DRUGS (7)
  1. METFORMIN [Suspect]
     Indication: TYPE 2 DIABETES MELLITUS
  2. GLICLAZIDE [Suspect]
     Indication: TYPE 2 DIABETES MELLITUS
  3. MELOXICAM [Suspect]
     Indication: PRODUCT USED FOR UNKNOWN INDICATION
  4. IRBESARTAN [Suspect]
     Indication: HYPERTENSION
  5. INDAPAMIDE [Suspect]
     Indication: HYPERTENSION
  6. AMLODIPINE [Suspect]
     Indication: HYPERTENSION
  7. ISOPHANE INSULIN [Suspect]
     Indication: TYPE 2 DIABETES MELLITUS

REACTIONS (3)
  - Renal failure acute [Unknown]
  - Large intestine polyp [Recovered/Resolved]
  - Lactic acidosis [Recovered/Resolved]
